FAERS Safety Report 23527649 (Version 1)
Quarter: 2024Q1

REPORT INFORMATION
  Report Type: Spontaneous
  Country: CN (occurrence: None)
  Receive Date: 20240215
  Receipt Date: 20240215
  Transmission Date: 20240410
  Serious: Yes (Other)
  Sender: FDA-Public Use
  Company Number: 2024A038268

PATIENT
  Age: 52 Year
  Sex: Female

DRUGS (3)
  1. GEFITINIB [Suspect]
     Active Substance: GEFITINIB
     Indication: Lung adenocarcinoma stage II
     Route: 048
  2. GEFITINIB [Suspect]
     Active Substance: GEFITINIB
     Indication: Lymphadenopathy mediastinal
     Route: 048
  3. GEFITINIB [Suspect]
     Active Substance: GEFITINIB
     Indication: Metastases to lung
     Route: 048

REACTIONS (3)
  - EGFR gene mutation [Unknown]
  - Metastases to central nervous system [Unknown]
  - Metastases to meninges [Unknown]
